FAERS Safety Report 5133923-9 (Version None)
Quarter: 2006Q4

REPORT INFORMATION
  Report Type: 
  Country: None (occurrence: None)
  Receive Date: 20061019
  Receipt Date: 20061006
  Transmission Date: 20070319
  Serious: Yes (Other)
  Sender: FDA-Public Use
  Company Number: 2006123890

PATIENT
  Age: 65 Year
  Sex: Female

DRUGS (6)
  1. MAGNEX (SULBACTAM, CEFOPERAZONE) [Suspect]
     Indication: LOWER RESPIRATORY TRACT INFECTION
     Dosage: 1 GRAM (1 GRAM, 1 IN 1 D), INTRAVENOUS
     Route: 042
     Dates: start: 20060928, end: 20061003
  2. LINEZOLID [Concomitant]
  3. RIFAMPICIN [Concomitant]
  4. ISONIAZID [Concomitant]
  5. PYRAZINAMIDE [Concomitant]
  6. ETAMBUTOL [Concomitant]

REACTIONS (4)
  - COAGULOPATHY [None]
  - GASTROINTESTINAL HAEMORRHAGE [None]
  - INFUSION SITE HAEMORRHAGE [None]
  - PLATELET COUNT DECREASED [None]
